FAERS Safety Report 9773170 (Version 2)
Quarter: 2014Q1

REPORT INFORMATION
  Report Type: Spontaneous
  Country: US (occurrence: None)
  Receive Date: 20131217
  Receipt Date: 20140114
  Transmission Date: 20141002
  Serious: Yes (Other)
  Sender: FDA-Public Use
  Company Number: SIM_00522_2013

PATIENT
  Age: 66 Year
  Sex: Female

DRUGS (1)
  1. HOMEOPATHICS [Suspect]
     Indication: PRODUCT USED FOR UNKNOWN INDICATION
     Dosage: 3-4 DROPS IO.
     Route: 047
     Dates: start: 201308, end: 20130916

REACTIONS (3)
  - Conjunctivitis [None]
  - Poor quality drug administered [None]
  - Product contamination [None]
